FAERS Safety Report 8809258 (Version 1)
Quarter: 2012Q4

REPORT INFORMATION
  Report Type: 
  Country: JP (occurrence: JP)
  Receive Date: 20120926
  Receipt Date: 20120926
  Transmission Date: 20130627
  Serious: Yes (Death, Other)
  Sender: FDA-Public Use
  Company Number: JP-PFIZER INC-2012193647

PATIENT
  Age: 69 Year
  Sex: Female

DRUGS (2)
  1. VORICONAZOLE [Suspect]
     Indication: PNEUMONIA
     Dosage: UNK
     Route: 048
  2. LEVOFLOXACIN [Suspect]
     Indication: PNEUMONIA
     Dosage: UNK
     Route: 048

REACTIONS (2)
  - Pseudomembranous colitis [Fatal]
  - Megacolon [Fatal]
